FAERS Safety Report 25521473 (Version 1)
Quarter: 2025Q3

REPORT INFORMATION
  Report Type: Spontaneous
  Country: US (occurrence: US)
  Receive Date: 20250706
  Receipt Date: 20250706
  Transmission Date: 20251020
  Serious: No
  Sender: SANOFI AVENTIS
  Company Number: US-SA-2025SA188899

PATIENT
  Age: 24 Year
  Sex: Female

DRUGS (11)
  1. DUPIXENT [Suspect]
     Active Substance: DUPILUMAB
     Indication: Asthma
     Dosage: 200 MG, QOW
     Route: 058
     Dates: start: 20230414
  2. ALBUTEROL SULFATE [Concomitant]
     Active Substance: ALBUTEROL SULFATE
  3. CETIRIZINE HCL [Concomitant]
     Active Substance: CETIRIZINE HYDROCHLORIDE
  4. DAYSEE [Concomitant]
     Active Substance: ETHINYL ESTRADIOL\LEVONORGESTREL
  5. EPINEPHRINE [Concomitant]
     Active Substance: EPINEPHRINE
  6. ESCITALOPRAM [Concomitant]
     Active Substance: ESCITALOPRAM OXALATE
  7. ALBUTEROL\IPRATROPIUM [Concomitant]
     Active Substance: ALBUTEROL\IPRATROPIUM
  8. KETOROLAC [Concomitant]
     Active Substance: KETOROLAC TROMETHAMINE
  9. MONTELUKAST SODIUM [Concomitant]
     Active Substance: MONTELUKAST SODIUM
  10. NEBIVOLOL [Concomitant]
     Active Substance: NEBIVOLOL
  11. PREDNISONE [Concomitant]
     Active Substance: PREDNISONE

REACTIONS (3)
  - Impaired quality of life [Unknown]
  - Asthma [Unknown]
  - Rash [Unknown]

NARRATIVE: CASE EVENT DATE: 20250101
